FAERS Safety Report 15348268 (Version 8)
Quarter: 2022Q3

REPORT INFORMATION
  Report Type: Report from Study
  Country: JP (occurrence: JP)
  Receive Date: 20180904
  Receipt Date: 20220713
  Transmission Date: 20221027
  Serious: Yes (Hospitalization)
  Sender: FDA-Public Use
  Company Number: JP-GLAXOSMITHKLINE-JP2018JPN156705

PATIENT

DRUGS (25)
  1. BELIMUMAB [Suspect]
     Active Substance: BELIMUMAB
     Indication: Systemic lupus erythematosus
     Dosage: 10 MG/KG, EVERY TWO WEEKS
     Route: 041
     Dates: start: 20180208, end: 20180308
  2. BELIMUMAB [Suspect]
     Active Substance: BELIMUMAB
     Indication: Lupus nephritis
     Dosage: 10 MG/KG, ONCE IN EVERY 4 WEEKS
     Route: 041
     Dates: start: 20180412, end: 20181129
  3. PREDNISOLONE [Suspect]
     Active Substance: PREDNISOLONE
     Dosage: 10 MG, 1D
     Dates: start: 20170214, end: 20181031
  4. PREDNISOLONE [Suspect]
     Active Substance: PREDNISOLONE
     Dosage: 9 MG, 1D
     Dates: start: 20181101, end: 20200210
  5. PREDNISOLONE [Suspect]
     Active Substance: PREDNISOLONE
     Dosage: 8 MG, 1D
     Dates: start: 20200211, end: 20200317
  6. PREDNISOLONE [Suspect]
     Active Substance: PREDNISOLONE
     Dosage: 7 MG, 1D
     Dates: start: 20200318, end: 20200428
  7. PREDNISOLONE [Suspect]
     Active Substance: PREDNISOLONE
     Dosage: 6 MG, 1D
     Dates: start: 20200429, end: 20200623
  8. PREDNISOLONE [Suspect]
     Active Substance: PREDNISOLONE
     Dosage: 5 MG, 1D
     Dates: start: 20200624, end: 20200714
  9. PREDNISOLONE [Suspect]
     Active Substance: PREDNISOLONE
     Dosage: 4 MG, 1D
     Dates: start: 20200715, end: 20210427
  10. PREDNISOLONE [Suspect]
     Active Substance: PREDNISOLONE
     Dosage: 3 MG, 1D
     Dates: start: 20210428, end: 20210611
  11. PROGRAF [Suspect]
     Active Substance: TACROLIMUS
     Dosage: 1.5 MG, 1D
  12. PROGRAF [Suspect]
     Active Substance: TACROLIMUS
     Dosage: 1.2 MG, 1D
  13. PROGRAF [Suspect]
     Active Substance: TACROLIMUS
     Dosage: 1 MG, 1D
     Dates: end: 20210519
  14. PROGRAF [Suspect]
     Active Substance: TACROLIMUS
     Dosage: 0.5 MG, 1D
     Dates: start: 20210520, end: 20210611
  15. BERAPROST SODIUM [Concomitant]
     Active Substance: BERAPROST SODIUM
     Indication: Raynaud^s phenomenon
     Dosage: UNK
  16. ICOSAPENT ETHYL [Concomitant]
     Active Substance: ICOSAPENT ETHYL
     Dosage: UNK
  17. HERBESSER [Concomitant]
     Active Substance: DILTIAZEM HYDROCHLORIDE
     Dosage: UNK
  18. PERSANTINE [Concomitant]
     Active Substance: DIPYRIDAMOLE
     Dosage: UNK
  19. VONOPRAZAN FUMARATE [Concomitant]
     Active Substance: VONOPRAZAN FUMARATE
     Dosage: UNK
  20. SULFAMETHOXAZOLE\TRIMETHOPRIM [Concomitant]
     Active Substance: SULFAMETHOXAZOLE\TRIMETHOPRIM
     Dosage: UNK
  21. ASPIRIN [Concomitant]
     Active Substance: ASPIRIN
     Dosage: UNK
  22. ONEALFA [Concomitant]
     Active Substance: ALFACALCIDOL
     Dosage: UNK
  23. ALLOPURINOL [Concomitant]
     Active Substance: ALLOPURINOL
     Indication: Hyperuricaemia
     Dosage: UNK
  24. CEFTAZIDIME [Concomitant]
     Active Substance: CEFTAZIDIME
     Dosage: UNK
  25. FEBUXOSTAT [Concomitant]
     Active Substance: FEBUXOSTAT
     Dosage: UNK

REACTIONS (3)
  - White blood cell count decreased [Recovered/Resolved]
  - White blood cell count decreased [Recovered/Resolved]
  - COVID-19 [Recovered/Resolved]

NARRATIVE: CASE EVENT DATE: 20180510
